FAERS Safety Report 19099472 (Version 2)
Quarter: 2021Q2

REPORT INFORMATION
  Report Type: Spontaneous
  Country: BR (occurrence: BR)
  Receive Date: 20210407
  Receipt Date: 20210409
  Transmission Date: 20210717
  Serious: Yes (Other)
  Sender: FDA-Public Use
  Company Number: BR-BRISTOL-MYERS SQUIBB COMPANY-BMS-2021-030131

PATIENT
  Age: 40 Year
  Sex: Female

DRUGS (4)
  1. HYDREA [Suspect]
     Active Substance: HYDROXYUREA
     Indication: SICKLE CELL ANAEMIA
     Dosage: 1 CAPSULE
     Route: 048
     Dates: start: 2003
  2. HYDREA [Suspect]
     Active Substance: HYDROXYUREA
     Dosage: 2 CAPSULES
     Route: 048
  3. HYDREA [Suspect]
     Active Substance: HYDROXYUREA
     Dosage: 2 CAPSULES
     Route: 048
  4. HYDREA [Suspect]
     Active Substance: HYDROXYUREA
     Dosage: 1 CAPSULE
     Route: 048

REACTIONS (7)
  - Product availability issue [Unknown]
  - Somnolence [Unknown]
  - Asthenia [Unknown]
  - Blood disorder [Unknown]
  - Product packaging quantity issue [Unknown]
  - Renal failure [Unknown]
  - Pneumonia [Unknown]
